FAERS Safety Report 7794672-1 (Version None)
Quarter: 2011Q3

REPORT INFORMATION
  Report Type: 
  Country: None (occurrence: None)
  Receive Date: 20110930
  Receipt Date: 20110920
  Transmission Date: 20111222
  Serious: Yes (Other)
  Sender: FDA-Public Use
  Company Number: 2011SP043605

PATIENT
  Age: 44 Year
  Sex: Female

DRUGS (4)
  1. ETIZOLAM [Concomitant]
  2. ALPRAZOLAM [Concomitant]
  3. MIRTAZAPINE [Suspect]
     Indication: SLEEP DISORDER
     Dosage: 7.5 MG;QD;PO
     Route: 048
     Dates: start: 20110412
  4. LOPERAMIDE HCL [Concomitant]

REACTIONS (1)
  - HYPOGLYCAEMIA [None]
